FAERS Safety Report 21149413 (Version 1)
Quarter: 2022Q3

REPORT INFORMATION
  Report Type: Spontaneous
  Country: US (occurrence: US)
  Receive Date: 20220729
  Receipt Date: 20220729
  Transmission Date: 20221027
  Serious: Yes (Other)
  Sender: FDA-Public Use
  Company Number: US-MYLANLABS-2022M1082061

PATIENT
  Sex: Female

DRUGS (21)
  1. CYTARABINE [Suspect]
     Active Substance: CYTARABINE
     Indication: Acute lymphocytic leukaemia
     Dosage: INDUCTION CHEMOTHERAPY; FOR 4 WEEKS
     Route: 037
     Dates: start: 201112, end: 201201
  2. METHOTREXATE [Suspect]
     Active Substance: METHOTREXATE
     Indication: Acute lymphocytic leukaemia
     Dosage: INDUCTION CHEMOTHERAPY;FOR 4 WEEKS
     Route: 037
     Dates: start: 201112, end: 201201
  3. METHOTREXATE [Suspect]
     Active Substance: METHOTREXATE
     Indication: Acute lymphocytic leukaemia recurrent
     Dosage: CONSOLIDATION THERAPY
     Route: 037
     Dates: start: 201204
  4. METHOTREXATE [Suspect]
     Active Substance: METHOTREXATE
     Dosage: ONCE AT THE START OF THERAPY AND ON HER DAY 6 AND DAY 35 OF THE TREATMENT
     Route: 037
     Dates: start: 202001, end: 202002
  5. MERCAPTOPURINE [Suspect]
     Active Substance: MERCAPTOPURINE
     Indication: Acute lymphocytic leukaemia
     Dosage: CONSOLIDATION THERAPY
     Route: 048
     Dates: start: 201204
  6. HYDROCORTISONE [Suspect]
     Active Substance: HYDROCORTISONE
     Indication: Product used for unknown indication
     Dosage: UNK
     Route: 065
  7. METHOTREXATE [Suspect]
     Active Substance: METHOTREXATE
     Indication: Acute lymphocytic leukaemia
     Dosage: MAINTENANCE THERAPY
     Route: 065
     Dates: start: 201211, end: 201404
  8. CYTARABINE [Suspect]
     Active Substance: CYTARABINE
     Indication: Acute lymphocytic leukaemia recurrent
     Dosage: CONSOLIDATION THERAPY
     Route: 065
     Dates: start: 201204
  9. CYTARABINE [Suspect]
     Active Substance: CYTARABINE
     Dosage: MAINTENANCE THERAPY
     Route: 065
     Dates: start: 201211, end: 201404
  10. CYTARABINE [Suspect]
     Active Substance: CYTARABINE
     Dosage: 40 MILLIGRAM (ON HER DAY 6 AND DAY 35 OF THE TREATMENT)
     Route: 065
     Dates: start: 202001, end: 202002
  11. VINCRISTINE [Suspect]
     Active Substance: VINCRISTINE
     Indication: Acute lymphocytic leukaemia
     Dosage: INDUCTION CHEMOTHERAPY; FOR 4 WEEKS
     Route: 042
     Dates: start: 201112, end: 201201
  12. VINCRISTINE [Suspect]
     Active Substance: VINCRISTINE
     Dosage: CONSOLIDATION THERAPY
     Route: 042
     Dates: start: 201204
  13. VINCRISTINE [Suspect]
     Active Substance: VINCRISTINE
     Indication: Acute lymphocytic leukaemia
     Dosage: MAINTENANCE THERAPY
     Route: 065
     Dates: start: 201211, end: 201404
  14. DAUNORUBICIN [Suspect]
     Active Substance: DAUNORUBICIN
     Indication: Acute lymphocytic leukaemia
     Dosage: INDUCTION CHEMOTHERAPY; FOR 4 WEEKS
     Route: 042
     Dates: start: 201112, end: 201201
  15. PEG/L-ASPARAGINASE [Suspect]
     Active Substance: PEGASPARGASE
     Indication: Acute lymphocytic leukaemia
     Dosage: INDUCTION CHEMOTHERAPY; FOR 4 WEEKS
     Route: 030
     Dates: start: 201112, end: 201201
  16. PEG/L-ASPARAGINASE [Suspect]
     Active Substance: PEGASPARGASE
     Dosage: CONSOLIDATION THERAPY
     Route: 030
     Dates: start: 201204
  17. CYCLOPHOSPHAMIDE [Suspect]
     Active Substance: CYCLOPHOSPHAMIDE
     Indication: Acute lymphocytic leukaemia
     Dosage: CONSOLIDATION THERAPY
     Route: 042
     Dates: start: 201204
  18. THIOGUANINE [Suspect]
     Active Substance: THIOGUANINE
     Indication: Acute lymphocytic leukaemia
     Dosage: MAINTENANCE THERAPY
     Route: 065
     Dates: start: 201211, end: 201404
  19. MENOTROPINS [Suspect]
     Active Substance: MENOTROPINS
     Indication: Controlled ovarian stimulation
     Dosage: 150 INTERNATIONAL UNIT
     Route: 065
     Dates: start: 202003
  20. INOTUZUMAB OZOGAMICIN [Suspect]
     Active Substance: INOTUZUMAB OZOGAMICIN
     Indication: Acute lymphocytic leukaemia recurrent
     Dosage: 0.77 MILLIGRAM
     Route: 042
     Dates: start: 202001, end: 202002
  21. ASPARAGINASE [Suspect]
     Active Substance: ASPARAGINASE
     Indication: Acute lymphocytic leukaemia
     Dosage: MAINTENANCE THERAPY
     Route: 065
     Dates: start: 201211, end: 201404

REACTIONS (2)
  - Deep vein thrombosis [Unknown]
  - Ovarian failure [Not Recovered/Not Resolved]

NARRATIVE: CASE EVENT DATE: 20200101
